FAERS Safety Report 16590804 (Version 1)
Quarter: 2019Q3

REPORT INFORMATION
  Report Type: Spontaneous
  Country: US (occurrence: US)
  Receive Date: 20190717
  Receipt Date: 20190717
  Transmission Date: 20191004
  Serious: No
  Sender: FDA-Public Use
  Company Number: None

PATIENT
  Age: 35 Year
  Sex: Male
  Weight: 103.5 kg

DRUGS (1)
  1. CVS LUBRICANT EYE DROPS [Suspect]
     Active Substance: CARBOXYMETHYLCELLULOSE SODIUM
     Indication: KERATOMILEUSIS
     Route: 047
     Dates: start: 20190712, end: 20190716

REACTIONS (2)
  - Recalled product administered [None]
  - Hordeolum [None]

NARRATIVE: CASE EVENT DATE: 20190715
